FAERS Safety Report 5249746-6 (Version None)
Quarter: 2007Q1

REPORT INFORMATION
  Report Type: 
  Country: None (occurrence: None)
  Receive Date: 20070228
  Receipt Date: 20070125
  Transmission Date: 20070707
  Serious: No
  Sender: FDA-Public Use
  Company Number: US-GLAXOSMITHKLINE-A0624377A

PATIENT
  Age: 51 Year
  Sex: Male
  Weight: 79.5 kg

DRUGS (7)
  1. IMITREX [Suspect]
     Indication: MIGRAINE
     Dosage: 6MG AS REQUIRED
     Route: 058
     Dates: start: 19960101
  2. IMITREX [Suspect]
     Dosage: 100MG AS REQUIRED
     Route: 048
  3. EXCEDRIN (MIGRAINE) [Concomitant]
  4. EXCEDRIN (MIGRAINE) [Concomitant]
  5. KLONOPIN [Concomitant]
     Indication: PANIC REACTION
     Dosage: 1MG TWICE PER DAY
     Route: 048
     Dates: start: 19960101
  6. IMIPRAMINE [Concomitant]
     Indication: MIGRAINE
     Dosage: 50MG TWICE PER DAY
     Route: 048
     Dates: start: 19910101
  7. LYRICA [Concomitant]
     Indication: MIGRAINE
     Dosage: 100MG TWICE PER DAY
     Dates: start: 20050101

REACTIONS (3)
  - DRUG INEFFECTIVE [None]
  - PAIN [None]
  - PHARMACEUTICAL PRODUCT COMPLAINT [None]
